FAERS Safety Report 7536557-1 (Version None)
Quarter: 2011Q2

REPORT INFORMATION
  Report Type: 
  Country: None (occurrence: None)
  Receive Date: 20110602
  Receipt Date: 20110530
  Transmission Date: 20111010
  Serious: Yes (Hospitalization)
  Sender: FDA-Public Use
  Company Number: 2011SP024887

PATIENT
  Sex: Female

DRUGS (1)
  1. IMPLANON [Suspect]
     Indication: CONTRACEPTION
     Dosage: SC
     Route: 058
     Dates: start: 20100812, end: 20110301

REACTIONS (14)
  - PAIN IN EXTREMITY [None]
  - COLD SWEAT [None]
  - FLUSHING [None]
  - DEPRESSION [None]
  - OVARIAN DISORDER [None]
  - NASOPHARYNGITIS [None]
  - WEIGHT DECREASED [None]
  - INSOMNIA [None]
  - ABDOMINAL PAIN LOWER [None]
  - ANAEMIA [None]
  - PERIPHERAL COLDNESS [None]
  - MENORRHAGIA [None]
  - FIBROMYALGIA [None]
  - PROCEDURAL PAIN [None]
